FAERS Safety Report 8044538-7 (Version None)
Quarter: 2012Q1

REPORT INFORMATION
  Report Type: 
  Country: None (occurrence: None)
  Receive Date: 20120113
  Receipt Date: 20111003
  Transmission Date: 20120608
  Serious: No
  Sender: FDA-Public Use
  Company Number: US-TEVA-301898USA

PATIENT
  Sex: Female
  Weight: 52.21 kg

DRUGS (1)
  1. ALBUTEROL SULFATE AND IPRATROPIUM BROMIDE [Suspect]

REACTIONS (2)
  - THROAT IRRITATION [None]
  - CHEST DISCOMFORT [None]
